FAERS Safety Report 6789760-2 (Version None)
Quarter: 2010Q2

REPORT INFORMATION
  Report Type: 
  Country: None (occurrence: None)
  Receive Date: 20100624
  Receipt Date: 20100615
  Transmission Date: 20101027
  Serious: Yes (Other)
  Sender: FDA-Public Use
  Company Number: US-PFIZER INC-2002052428

PATIENT
  Sex: Female
  Weight: 63.5 kg

DRUGS (2)
  1. DILANTIN [Suspect]
     Indication: CONVULSION
     Dosage: 300 MG, 1X/DAY
     Route: 048
  2. DILANTIN [Suspect]
     Dosage: 400 MG, 1X/DAY
     Route: 048

REACTIONS (5)
  - ANGINA PECTORIS [None]
  - BLOOD THYROID STIMULATING HORMONE DECREASED [None]
  - HYPERTENSION [None]
  - LIPOMA [None]
  - URINARY TRACT INFECTION [None]
